FAERS Safety Report 7493323-3 (Version None)
Quarter: 2011Q2

REPORT INFORMATION
  Report Type: 
  Country: None (occurrence: None)
  Receive Date: 20110520
  Receipt Date: 20110421
  Transmission Date: 20111010
  Serious: Yes (Other)
  Sender: FDA-Public Use
  Company Number: US-BAYER-201041338NA

PATIENT
  Age: 31 Year
  Sex: Female
  Weight: 84 kg

DRUGS (13)
  1. YAZ [Suspect]
     Indication: MENSTRUAL DISORDER
  2. PREDNISONE [Concomitant]
  3. YASMIN [Suspect]
     Indication: CONTRACEPTION
     Dosage: UNK
     Dates: start: 20050101, end: 20090101
  4. ZYRTEC [Concomitant]
     Indication: HYPERSENSITIVITY
     Dosage: 10 MG, QD
     Dates: start: 20060101
  5. ALBUTEROL [Concomitant]
     Indication: ASTHMA
     Dosage: UNK UNK, Q4HR
     Dates: start: 20040101
  6. SYMBICORT [Concomitant]
     Dosage: UNK UNK, BID
  7. COMBIVENT [Concomitant]
     Dosage: UNK UNK, QID
  8. YASMIN [Suspect]
     Indication: MENSTRUAL DISORDER
  9. SINGULAIR [Concomitant]
     Indication: ASTHMA
     Dosage: UNK UNK, QD
     Dates: start: 20050101
  10. YAZ [Suspect]
     Indication: CONTRACEPTION
     Dosage: UNK
     Dates: start: 20050101, end: 20090101
  11. FLUOXETINE [Concomitant]
     Dosage: 20 MG, QD
  12. TOPAMAX [Concomitant]
     Indication: MIGRAINE
     Dosage: 75 MG, QD
     Dates: start: 20080101
  13. IMITREX [Concomitant]
     Indication: MIGRAINE
     Dosage: 100 MG, PRN
     Dates: start: 20040101

REACTIONS (2)
  - GALLBLADDER DISORDER [None]
  - CHOLECYSTITIS [None]
